FAERS Safety Report 9995398 (Version 1)
Quarter: 2014Q1

REPORT INFORMATION
  Report Type: Spontaneous
  Country: US (occurrence: None)
  Receive Date: 20140307
  Receipt Date: 20140307
  Transmission Date: 20141002
  Serious: Yes (Other)
  Sender: FDA-Public Use
  Company Number: None

PATIENT
  Age: 49 Year
  Sex: Female
  Weight: 52.16 kg

DRUGS (1)
  1. ABILIFY [Suspect]
     Indication: BIPOLAR DISORDER
     Dosage: 1 PILL ONCE DAILY TAKEN UNDER THE TONGUE
     Dates: start: 20090101, end: 20140303

REACTIONS (3)
  - Gambling [None]
  - Obsessive-compulsive disorder [None]
  - Economic problem [None]
